FAERS Safety Report 12994817 (Version 1)
Quarter: 2016Q4

REPORT INFORMATION
  Report Type: Spontaneous
  Country: NL (occurrence: NL)
  Receive Date: 20161202
  Receipt Date: 20161202
  Transmission Date: 20170207
  Serious: Yes (Other)
  Sender: FDA-Public Use
  Company Number: NL-TEVA-715840ISR

PATIENT
  Age: 45 Year
  Sex: Female

DRUGS (1)
  1. CLOZAPINE. [Suspect]
     Active Substance: CLOZAPINE
     Indication: SCHIZOPHRENIA
     Dosage: 100 MILLIGRAM DAILY;

REACTIONS (9)
  - Constipation [Recovered/Resolved]
  - Muscle contractions involuntary [Recovered/Resolved]
  - Fatigue [Recovered/Resolved]
  - Urinary hesitation [Recovered/Resolved]
  - Drug interaction [Recovered/Resolved]
  - Drug level increased [Recovered/Resolved]
  - Salivary hypersecretion [Recovered/Resolved]
  - Visual acuity reduced [Recovered/Resolved]
  - Tremor [Recovered/Resolved]
